FAERS Safety Report 4549268-1 (Version None)
Quarter: 2005Q1

REPORT INFORMATION
  Report Type: 
  Country: None (occurrence: None)
  Receive Date: 20050110
  Receipt Date: 20050110
  Transmission Date: 20050727
  Serious: Yes (Other)
  Sender: FDA-Public Use
  Company Number: None

PATIENT
  Age: 38 Year
  Sex: Male
  Weight: 109.7705 kg

DRUGS (3)
  1. ETHYOL [Suspect]
     Dosage: 500 MG SQ DAILY M-F
     Route: 058
  2. COMPAZINE [Concomitant]
  3. REGLAN [Concomitant]

REACTIONS (2)
  - RASH MACULO-PAPULAR [None]
  - RASH PRURITIC [None]
